FAERS Safety Report 9778988 (Version 1)
Quarter: 2013Q4

REPORT INFORMATION
  Report Type: Spontaneous
  Country: CA (occurrence: CA)
  Receive Date: 20131223
  Receipt Date: 20131223
  Transmission Date: 20140711
  Serious: Yes (Hospitalization, Other)
  Sender: FDA-Public Use
  Company Number: CA-AMGEN-CANSP2013089163

PATIENT
  Age: 66 Year
  Sex: Female

DRUGS (1)
  1. XGEVA [Suspect]
     Indication: NEOPLASM MALIGNANT
     Dosage: 120 MG, UNK
     Route: 065
     Dates: start: 20120412

REACTIONS (3)
  - Abasia [Not Recovered/Not Resolved]
  - Neoplasm [Not Recovered/Not Resolved]
  - Bone disorder [Not Recovered/Not Resolved]
